FAERS Safety Report 9665218 (Version 1)
Quarter: 2013Q4

REPORT INFORMATION
  Report Type: Spontaneous
  Country: US (occurrence: US)
  Receive Date: 20131101
  Receipt Date: 20131101
  Transmission Date: 20140711
  Serious: No
  Sender: FDA-Public Use
  Company Number: US-PFIZER INC-2013311791

PATIENT
  Age: 56 Year
  Sex: Female
  Weight: 67 kg

DRUGS (4)
  1. CELEBREX [Suspect]
     Indication: RHEUMATOID ARTHRITIS
     Dosage: 100 MG, DAILY
  2. METHOTREXATE [Concomitant]
     Indication: RHEUMATOID ARTHRITIS
     Dosage: 16 MG, WEEKLY
  3. TRIAMTERENE [Concomitant]
     Indication: HYPERTENSION
     Dosage: UNK
  4. SULFASALAZINE [Concomitant]
     Dosage: UNK

REACTIONS (4)
  - Malaise [Unknown]
  - Joint swelling [Unknown]
  - Discomfort [Unknown]
  - Pain [Unknown]
